FAERS Safety Report 11990369 (Version 4)
Quarter: 2016Q1

REPORT INFORMATION
  Report Type: Spontaneous
  Country: US (occurrence: US)
  Receive Date: 20160202
  Receipt Date: 20160318
  Transmission Date: 20160526
  Serious: Yes (Death, Hospitalization)
  Sender: FDA-Public Use
  Company Number: US-ACTELION-A-NJ2016-130571

PATIENT
  Age: 83 Year
  Sex: Female

DRUGS (37)
  1. METHYLPREDISOLONE [Concomitant]
     Active Substance: METHYLPREDNISOLONE
  2. OFLOXACIN. [Concomitant]
     Active Substance: OFLOXACIN
  3. ZOLPIDEM [Concomitant]
     Active Substance: ZOLPIDEM\ZOLPIDEM TARTRATE
  4. AVELOX [Concomitant]
     Active Substance: MOXIFLOXACIN HYDROCHLORIDE
  5. AMOXICILLIN. [Concomitant]
     Active Substance: AMOXICILLIN
  6. CLOTRIMAZOLE. [Concomitant]
     Active Substance: CLOTRIMAZOLE
  7. HYDROMET [Concomitant]
     Active Substance: HOMATROPINE METHYLBROMIDE\HYDROCODONE BITARTRATE
  8. FOLIC ACID. [Concomitant]
     Active Substance: FOLIC ACID
  9. ROBITUSSIN DM [Concomitant]
     Active Substance: DEXTROMETHORPHAN HYDROBROMIDE\GUAIFENESIN
  10. HYDROCODONE/GUAIFENESIN [Concomitant]
     Active Substance: GUAIFENESIN\HYDROCODONE BITARTRATE
  11. LYRICA [Concomitant]
     Active Substance: PREGABALIN
  12. WARFARIN [Concomitant]
     Active Substance: WARFARIN
  13. AZITHROMYCIN ANHYDROUS. [Concomitant]
     Active Substance: AZITHROMYCIN ANHYDROUS
  14. DEXAMETHASONE. [Concomitant]
     Active Substance: DEXAMETHASONE
  15. DRONABINOL. [Concomitant]
     Active Substance: DRONABINOL
  16. LACTULOSE. [Concomitant]
     Active Substance: LACTULOSE
  17. MEGACE [Concomitant]
     Active Substance: MEGESTROL ACETATE
  18. ADVAIR HFA [Concomitant]
     Active Substance: FLUTICASONE PROPIONATE\SALMETEROL XINAFOATE
  19. HYDROCODONE BITARTRATE AND ACETAMINOPHEN [Concomitant]
     Active Substance: ACETAMINOPHEN\HYDROCODONE BITARTRATE
  20. TRAMADOL. [Concomitant]
     Active Substance: TRAMADOL
  21. BENZONATATE. [Concomitant]
     Active Substance: BENZONATATE
  22. ARTHROTEC [Concomitant]
     Active Substance: DICLOFENAC SODIUM\MISOPROSTOL
  23. MELOXICAM. [Concomitant]
     Active Substance: MELOXICAM
  24. TRAZODONE [Concomitant]
     Active Substance: TRAZODONE HYDROCHLORIDE
  25. PROLIA [Concomitant]
     Active Substance: DENOSUMAB
  26. CLONAZEPAM. [Concomitant]
     Active Substance: CLONAZEPAM
  27. FUROSEMIDE. [Concomitant]
     Active Substance: FUROSEMIDE
  28. METOPROLOL. [Concomitant]
     Active Substance: METOPROLOL
  29. POTASSIUM CHLORIDE. [Concomitant]
     Active Substance: POTASSIUM CHLORIDE
  30. LIPITOR [Concomitant]
     Active Substance: ATORVASTATIN CALCIUM
  31. ATENOLOL. [Concomitant]
     Active Substance: ATENOLOL
  32. HYDROCHLOROTHIAZIDE. [Concomitant]
     Active Substance: HYDROCHLOROTHIAZIDE
  33. FLECTOR [Concomitant]
     Active Substance: DICLOFENAC EPOLAMINE
  34. TRACLEER [Suspect]
     Active Substance: BOSENTAN
     Indication: PULMONARY ARTERIAL HYPERTENSION
     Dosage: 125 MG, UNK
     Route: 048
     Dates: start: 20100608, end: 20160107
  35. PREDNISONE. [Concomitant]
     Active Substance: PREDNISONE
  36. ROZEREM [Concomitant]
     Active Substance: RAMELTEON
  37. DILTIAZEM [Concomitant]
     Active Substance: DILTIAZEM

REACTIONS (2)
  - Pulmonary arterial hypertension [Fatal]
  - Dyspnoea [Fatal]
